FAERS Safety Report 22313241 (Version 1)
Quarter: 2023Q2

REPORT INFORMATION
  Report Type: Spontaneous
  Country: US (occurrence: US)
  Receive Date: 20230512
  Receipt Date: 20230512
  Transmission Date: 20230721
  Serious: Yes (Hospitalization, Other)
  Sender: FDA-Public Use
  Company Number: US-002147023-NVSC2023US104195

PATIENT
  Sex: Female

DRUGS (7)
  1. ZOFRAN [Suspect]
     Active Substance: ONDANSETRON HYDROCHLORIDE
     Indication: Product used for unknown indication
     Dosage: UNK
     Route: 065
  2. GATTEX [Suspect]
     Active Substance: TEDUGLUTIDE\WATER
     Indication: Short-bowel syndrome
     Dosage: 2.77 MG, QD
     Route: 058
     Dates: start: 202205
  3. GATTEX [Suspect]
     Active Substance: TEDUGLUTIDE\WATER
     Dosage: 2.77 MG, QD
     Route: 058
     Dates: start: 202206
  4. GATTEX [Suspect]
     Active Substance: TEDUGLUTIDE\WATER
     Dosage: 2.77 MG, QD
     Route: 058
     Dates: start: 20220615
  5. GATTEX [Suspect]
     Active Substance: TEDUGLUTIDE\WATER
     Dosage: 2.77 MG, QD
     Route: 058
     Dates: start: 20220620
  6. GATTEX [Suspect]
     Active Substance: TEDUGLUTIDE\WATER
     Dosage: 2.77 MG, QD
     Route: 058
     Dates: start: 20220621
  7. GATTEX [Suspect]
     Active Substance: TEDUGLUTIDE\WATER
     Dosage: 2.77 MG, QD
     Route: 058
     Dates: start: 20220907

REACTIONS (13)
  - Cholecystitis [Unknown]
  - Nephrolithiasis [Unknown]
  - Lumbar vertebral fracture [Unknown]
  - Dehydration [Unknown]
  - Weight increased [Recovering/Resolving]
  - Peripheral swelling [Unknown]
  - Gastrointestinal stoma output abnormal [Unknown]
  - Fall [Unknown]
  - Weight decreased [Unknown]
  - Somnolence [Unknown]
  - Device leakage [Unknown]
  - Nausea [Not Recovered/Not Resolved]
  - Product dose omission issue [Recovered/Resolved]
